FAERS Safety Report 9376322 (Version 1)
Quarter: 2013Q3

REPORT INFORMATION
  Report Type: Spontaneous
  Country: JP (occurrence: JP)
  Receive Date: 20130701
  Receipt Date: 20130701
  Transmission Date: 20140515
  Serious: Yes (Hospitalization)
  Sender: FDA-Public Use
  Company Number: PHHY2013JP065648

PATIENT
  Age: 78 Year
  Sex: Male

DRUGS (6)
  1. VERAPAMIL HYDROCHLORIDE [Suspect]
     Indication: HYPERTENSION
     Dates: start: 2008
  2. AZELNIDIPINE [Suspect]
     Indication: HYPERTENSION
     Dates: start: 2008
  3. PREDNISOLONE [Concomitant]
     Dosage: 35 MG, PER DAY
  4. PREDNISOLONE [Concomitant]
     Dosage: 1 MG, PER DAY
  5. PREDNISOLONE [Concomitant]
     Dosage: 20 MG, PER DAY
  6. PREDNISOLONE [Concomitant]
     Dosage: 1 MG, PER DAY

REACTIONS (11)
  - Drug reaction with eosinophilia and systemic symptoms [Recovered/Resolved]
  - Rash maculo-papular [Recovered/Resolved]
  - Pruritus [Recovered/Resolved]
  - Face oedema [Recovered/Resolved]
  - Pyrexia [Recovered/Resolved]
  - Lymphadenopathy [Recovered/Resolved]
  - Pharyngeal erythema [Recovered/Resolved]
  - Leukocytosis [Recovered/Resolved]
  - Eosinophilia [Recovered/Resolved]
  - Hepatic function abnormal [Recovered/Resolved]
  - Human herpesvirus 6 infection [Recovered/Resolved]
